FAERS Safety Report 17022426 (Version 2)
Quarter: 2019Q4

REPORT INFORMATION
  Report Type: Report from Study
  Country: US (occurrence: US)
  Receive Date: 20191112
  Receipt Date: 20191119
  Transmission Date: 20200122
  Serious: Yes (Hospitalization)
  Sender: FDA-Public Use
  Company Number: US-ACTELION-A-NJ2019-192225

PATIENT
  Sex: Male

DRUGS (2)
  1. BOSENTAN TABLET 32 MG PED US [Suspect]
     Active Substance: BOSENTAN
     Indication: PULMONARY ARTERIAL HYPERTENSION
     Dosage: 12.8 MG, BID
     Route: 048
     Dates: start: 20190529
  2. BOSENTAN TABLET 32 MG PED US [Suspect]
     Active Substance: BOSENTAN
     Dosage: 19.2 MG, BID
     Route: 048
     Dates: start: 201905

REACTIONS (10)
  - Infusion site erythema [Unknown]
  - Diarrhoea [Unknown]
  - Swelling of eyelid [Not Recovered/Not Resolved]
  - Muscle spasms [Not Recovered/Not Resolved]
  - Lip swelling [Not Recovered/Not Resolved]
  - Dermatitis diaper [Not Recovered/Not Resolved]
  - Transplant evaluation [Unknown]
  - Infusion site pain [Unknown]
  - Product use issue [Unknown]
  - Flushing [Unknown]
